FAERS Safety Report 5518970-7 (Version None)
Quarter: 2007Q4

REPORT INFORMATION
  Report Type: 
  Country: None (occurrence: None)
  Receive Date: 20071116
  Receipt Date: 20071109
  Transmission Date: 20080405
  Serious: Yes (Other)
  Sender: FDA-Public Use
  Company Number: PHBS2007BR15712

PATIENT
  Age: 47 Year
  Sex: Male
  Weight: 80 kg

DRUGS (5)
  1. GENTEAL GEL (NVO) [Suspect]
  2. DECADRON /CAN/ [Concomitant]
     Indication: BRAIN OEDEMA
     Dosage: 10 MG, UNK
     Route: 048
  3. PANTOPRAZOLE SODIUM [Concomitant]
     Indication: ABDOMINAL PAIN UPPER
     Dosage: 1 DF, QD
     Route: 048
  4. TEGRETOL [Suspect]
     Indication: BRAIN OEDEMA
     Dosage: 1 DF, QD
     Route: 048
     Dates: start: 20070831, end: 20070917
  5. TEGRETOL [Suspect]

REACTIONS (7)
  - BLINDNESS TRANSIENT [None]
  - DRUG ERUPTION [None]
  - FURUNCLE [None]
  - HYPERSENSITIVITY [None]
  - PRURITUS [None]
  - VISION BLURRED [None]
  - VISUAL DISTURBANCE [None]
